FAERS Safety Report 9081667 (Version 1)
Quarter: 2013Q1

REPORT INFORMATION
  Report Type: Report from Study
  Country: US (occurrence: US)
  Receive Date: 20130130
  Receipt Date: 20130130
  Transmission Date: 20140127
  Serious: No
  Sender: FDA-Public Use
  Company Number: US-ABBOTT-12P-163-0943490-00

PATIENT
  Age: 54 Year
  Sex: Male

DRUGS (2)
  1. HUMIRA 40 MG/0.8 ML PEN [Suspect]
     Indication: PSORIASIS
     Dates: start: 20120414
  2. TRAZADONE [Concomitant]
     Indication: PRODUCT USED FOR UNKNOWN INDICATION
     Dates: start: 201204

REACTIONS (6)
  - Swelling face [Recovered/Resolved]
  - Drug administration error [Not Recovered/Not Resolved]
  - Injection site reaction [Not Recovered/Not Resolved]
  - Vomiting [Unknown]
  - Oedema peripheral [Not Recovered/Not Resolved]
  - Injection site pain [Not Recovered/Not Resolved]
